FAERS Safety Report 8290290 (Version 3)
Quarter: 2012Q4

REPORT INFORMATION
  Report Type: 
  Country: US (occurrence: US)
  Receive Date: 20111214
  Receipt Date: 20121011
  Transmission Date: 20130627
  Serious: Yes (Other)
  Sender: FDA-Public Use
  Company Number: US-BAYER-2011-116688

PATIENT
  Age: 42 Year
  Sex: Female
  Weight: 57.6 kg

DRUGS (9)
  1. YAZ [Suspect]
     Indication: MENORRHAGIA
     Dosage: UNK
     Dates: start: 2008, end: 2009
  2. PINK BISMUTH [Concomitant]
     Dosage: 262 mg, UNK
     Dates: start: 20091019
  3. AMOXICILLIN [Concomitant]
     Dosage: 500 mg, UNK
     Dates: start: 20091019
  4. METRONIDAZOLE [Concomitant]
     Dosage: 500 mg, UNK
     Dates: start: 20091019
  5. FLUCONAZOLE [Concomitant]
     Dosage: 150 mg, UNK
     Dates: start: 20091027
  6. OMEPRAZOLE [Concomitant]
     Dosage: 40 mg, UNK
     Dates: start: 20091204
  7. CEPHADYN [Concomitant]
     Dosage: 50-650 mg
     Dates: start: 20091224
  8. CIPROFLOXACIN [Concomitant]
     Dosage: 500 mg, UNK
     Dates: start: 20091225
  9. MIRTAZAPINE [Concomitant]
     Dosage: 30 mg, UNK
     Dates: start: 20091209

REACTIONS (5)
  - Deep vein thrombosis [None]
  - Cholecystectomy [None]
  - Biliary dyskinesia [None]
  - Injury [None]
  - Pain [None]
